FAERS Safety Report 5139907-9 (Version None)
Quarter: 2006Q4

REPORT INFORMATION
  Report Type: 
  Country: None (occurrence: None)
  Receive Date: 20061031
  Receipt Date: 20061018
  Transmission Date: 20070319
  Serious: Yes (Hospitalization)
  Sender: FDA-Public Use
  Company Number: 2006CG01698

PATIENT
  Age: 61 Year
  Sex: Male

DRUGS (3)
  1. CASODEX [Suspect]
     Indication: PROSTATE CANCER
     Route: 048
     Dates: start: 20051115, end: 20060901
  2. CASODEX [Suspect]
     Route: 048
     Dates: start: 20060901, end: 20060914
  3. TAMOXIFEN CITRATE [Concomitant]
     Indication: PROSTATE CANCER
     Dates: start: 20060801

REACTIONS (16)
  - BALANITIS [None]
  - BLOOD BLISTER [None]
  - HERPES SIMPLEX [None]
  - INFLAMMATION [None]
  - INTERSTITIAL LUNG DISEASE [None]
  - LUNG DISORDER [None]
  - MYCOPLASMA INFECTION [None]
  - PRURITUS [None]
  - PYREXIA [None]
  - RASH PAPULAR [None]
  - RASH PUSTULAR [None]
  - SKIN LESION [None]
  - SKIN SWELLING [None]
  - THERAPY NON-RESPONDER [None]
  - TONGUE DISORDER [None]
  - TOXIC SKIN ERUPTION [None]
